FAERS Safety Report 11176143 (Version 1)
Quarter: 2015Q2

REPORT INFORMATION
  Report Type: Spontaneous
  Country: IN (occurrence: IN)
  Receive Date: 20150609
  Receipt Date: 20150609
  Transmission Date: 20150821
  Serious: Yes (Hospitalization)
  Sender: FDA-Public Use
  Company Number: PHHY2015IN065660

PATIENT
  Age: 25 Year
  Sex: Male

DRUGS (1)
  1. OLANZAPINE. [Suspect]
     Active Substance: OLANZAPINE
     Indication: PSYCHOTIC DISORDER
     Dosage: 10 MG, QD
     Route: 065

REACTIONS (8)
  - Ascites [Recovered/Resolved]
  - Pancreatitis necrotising [Recovered/Resolved]
  - Respiratory distress [Unknown]
  - Pyrexia [Unknown]
  - Abdominal pain upper [Recovered/Resolved]
  - Back pain [Recovered/Resolved]
  - Ileus paralytic [Recovered/Resolved]
  - Vomiting [Recovered/Resolved]
